FAERS Safety Report 8136724-2 (Version None)
Quarter: 2012Q1

REPORT INFORMATION
  Report Type: 
  Country: None (occurrence: None)
  Receive Date: 20120214
  Receipt Date: 20120208
  Transmission Date: 20120608
  Serious: Yes (Death)
  Sender: FDA-Public Use
  Company Number: US-GILEAD-2012-0049028

PATIENT
  Sex: Female

DRUGS (8)
  1. LETAIRIS [Suspect]
     Indication: PULMONARY HYPERTENSION
     Dosage: 5 MG, UNK
     Route: 048
     Dates: start: 20090901, end: 20120101
  2. LETAIRIS [Suspect]
     Indication: LUNG DISORDER
  3. LETAIRIS [Suspect]
     Indication: VENTRICULAR SEPTAL DEFECT
  4. LETAIRIS [Suspect]
     Indication: VIRAL INFECTION
  5. LETAIRIS [Suspect]
     Indication: GASTROOESOPHAGEAL REFLUX DISEASE
  6. SILDENAFIL [Concomitant]
     Indication: PULMONARY HYPERTENSION
  7. LETAIRIS [Suspect]
     Indication: HEART DISEASE CONGENITAL
  8. REMODULIN [Concomitant]
     Indication: PULMONARY HYPERTENSION

REACTIONS (5)
  - THROMBOCYTOPENIA [None]
  - RETROPERITONEAL HAEMORRHAGE [None]
  - OESOPHAGOGASTRIC FUNDOPLASTY [None]
  - POST PROCEDURAL HAEMORRHAGE [None]
  - EXPLORATORY OPERATION [None]
